FAERS Safety Report 7465153-X (Version None)
Quarter: 2011Q2

REPORT INFORMATION
  Report Type: 
  Country: None (occurrence: None)
  Receive Date: 20110505
  Receipt Date: 20110505
  Transmission Date: 20111010
  Serious: Yes (Other)
  Sender: FDA-Public Use
  Company Number: None

PATIENT
  Sex: Female
  Weight: 95.2554 kg

DRUGS (1)
  1. DARVON [Suspect]
     Indication: SINUS OPERATION
     Dates: start: 20101109, end: 20101112

REACTIONS (4)
  - DYSPNOEA [None]
  - PANIC REACTION [None]
  - ANXIETY [None]
  - APPARENT DEATH [None]
